FAERS Safety Report 5859895-7 (Version None)
Quarter: 2008Q3

REPORT INFORMATION
  Report Type: 
  Country: None (occurrence: None)
  Receive Date: 20080827
  Receipt Date: 20080825
  Transmission Date: 20090109
  Serious: Yes (Hospitalization, Congenital Anomaly)
  Sender: FDA-Public Use
  Company Number: FR-AVENTIS-200710342FR

PATIENT
  Age: 26 Year
  Sex: Female

DRUGS (6)
  1. LANTUS [Suspect]
     Indication: TYPE 1 DIABETES MELLITUS
     Route: 058
     Dates: start: 20040622
  2. ACTRAPID [Suspect]
     Indication: TYPE 1 DIABETES MELLITUS
     Route: 058
     Dates: start: 20060115
  3. DEPAKENE [Suspect]
     Route: 048
  4. INSULATARD NPH HUMAN [Suspect]
     Route: 058
  5. MONAZOL [Concomitant]
     Dates: start: 20080318, end: 20080318
  6. POLYGYNAX                          /00664801/ [Concomitant]
     Dates: start: 20060318, end: 20060318

REACTIONS (5)
  - ABORTION INDUCED [None]
  - ATRIAL SEPTAL DEFECT [None]
  - CONGENITAL DIAPHRAGMATIC HERNIA [None]
  - POLYHYDRAMNIOS [None]
  - PULMONARY MALFORMATION [None]
